FAERS Safety Report 24730442 (Version 2)
Quarter: 2025Q2

REPORT INFORMATION
  Report Type: Report from Study
  Country: US (occurrence: US)
  Receive Date: 20241213
  Receipt Date: 20250604
  Transmission Date: 20250716
  Serious: Yes (Hospitalization, Other)
  Sender: UCB
  Company Number: US-UCBSA-2024064315

PATIENT
  Sex: Female

DRUGS (2)
  1. MIDAZOLAM [Suspect]
     Active Substance: MIDAZOLAM
     Indication: Seizure
     Route: 045
     Dates: end: 2024
  2. MIDAZOLAM [Suspect]
     Active Substance: MIDAZOLAM
     Indication: Epilepsy

REACTIONS (2)
  - Metastatic malignant melanoma [Not Recovered/Not Resolved]
  - Seizure [Unknown]

NARRATIVE: CASE EVENT DATE: 20230101
